FAERS Safety Report 25221971 (Version 1)
Quarter: 2025Q2

REPORT INFORMATION
  Report Type: Spontaneous
  Country: US (occurrence: US)
  Receive Date: 20250421
  Receipt Date: 20250421
  Transmission Date: 20250716
  Serious: Yes (Life-Threatening, Other)
  Sender: NOVARTIS
  Company Number: US-002147023-NVSC2025US065203

PATIENT
  Sex: Male

DRUGS (1)
  1. LEQVIO [Suspect]
     Active Substance: INCLISIRAN SODIUM
     Indication: Product used for unknown indication
     Route: 065
     Dates: start: 202304

REACTIONS (13)
  - Cerebrovascular accident [Unknown]
  - Rectal haemorrhage [Unknown]
  - Spinal fracture [Unknown]
  - Dementia [Unknown]
  - Illness [Unknown]
  - Memory impairment [Unknown]
  - Balance disorder [Unknown]
  - Fall [Unknown]
  - Diarrhoea [Unknown]
  - Constipation [Unknown]
  - Hypertension [Unknown]
  - Pruritus [Unknown]
  - Cognitive disorder [Unknown]
